FAERS Safety Report 8509033-7 (Version None)
Quarter: 2012Q3

REPORT INFORMATION
  Report Type: 
  Country: None (occurrence: None)
  Receive Date: 20120703
  Receipt Date: 20120618
  Transmission Date: 20120928
  Serious: Yes (Hospitalization)
  Sender: FDA-Public Use
  Company Number: 201206006

PATIENT
  Age: 55 Year
  Sex: Male

DRUGS (4)
  1. IMOVANE (ZOPICLONE) [Concomitant]
  2. STABLON (TIANEPTINE SODIUM) [Suspect]
     Indication: DEPRESSION
     Dosage: 3 IN 1 D, ORAL
     Route: 048
     Dates: start: 20060101
  3. HAVLANE (LOPRAZOLAM MESILATE) [Concomitant]
  4. XIAFLEX [Suspect]
     Indication: DUPUYTREN'S CONTRACTURE
     Dosage: 1 IN 1 D, INTRALESIONAL
     Route: 026
     Dates: start: 20111128, end: 20111128

REACTIONS (9)
  - GASTRINOMA [None]
  - HIATUS HERNIA [None]
  - OESOPHAGEAL STENOSIS [None]
  - WEIGHT DECREASED [None]
  - HAEMOGLOBIN DECREASED [None]
  - OESOPHAGEAL CARCINOMA [None]
  - OESOPHAGITIS ULCERATIVE [None]
  - VOMITING [None]
  - DYSPHAGIA [None]
